FAERS Safety Report 17072436 (Version 1)
Quarter: 2019Q4

REPORT INFORMATION
  Report Type: Spontaneous
  Country: AU (occurrence: AU)
  Receive Date: 20191125
  Receipt Date: 20191125
  Transmission Date: 20200122
  Serious: Yes (Hospitalization, Other)
  Sender: FDA-Public Use
  Company Number: AU-BRISTOL-MYERS SQUIBB COMPANY-BMS-2019-111432

PATIENT
  Age: 73 Year
  Sex: Female

DRUGS (1)
  1. NIVOLUMAB [Suspect]
     Active Substance: NIVOLUMAB
     Indication: NON-SMALL CELL LUNG CANCER METASTATIC
     Dosage: UNK
     Route: 065
     Dates: start: 201611, end: 201701

REACTIONS (7)
  - Ophthalmoplegia [Unknown]
  - Dysphonia [Unknown]
  - Diplopia [Unknown]
  - Dysphagia [Unknown]
  - Myositis [Unknown]
  - Myocarditis [Unknown]
  - Eyelid ptosis [Unknown]
